FAERS Safety Report 25442224 (Version 1)
Quarter: 2025Q2

REPORT INFORMATION
  Report Type: Other
  Country: CN (occurrence: CN)
  Receive Date: 20250616
  Receipt Date: 20250616
  Transmission Date: 20250716
  Serious: Yes (Other)
  Sender: XCOVERY HOLDINGS
  Company Number: CN-XCO-202500037

PATIENT
  Age: 71 Year
  Sex: Female
  Weight: 43 kg

DRUGS (3)
  1. ENSARTINIB HYDROCHLORIDE [Suspect]
     Active Substance: ENSARTINIB HYDROCHLORIDE
     Indication: Lung neoplasm malignant
     Route: 048
     Dates: start: 20241115, end: 20241207
  2. SODIUM CHLORIDE [Concomitant]
     Active Substance: SODIUM CHLORIDE
     Indication: Medication dilution
     Dosage: INTRAVENOUS DRIP?0.9% SODIUM CHLORIDE INJECTION (LIRUAN DOUBLE VALVE)
     Route: 065
     Dates: start: 20241204, end: 20241204
  3. BEVACIZUMAB [Concomitant]
     Active Substance: BEVACIZUMAB
     Indication: Lung neoplasm malignant
     Dosage: INTRAVENOUS DRIP INFUSION??INJECTION
     Route: 065
     Dates: start: 20241204, end: 20241204

REACTIONS (3)
  - Drug eruption [Recovered/Resolved]
  - Pigmentation disorder [Unknown]
  - Incorrect dose administered [Unknown]

NARRATIVE: CASE EVENT DATE: 20241115
